FAERS Safety Report 9632939 (Version 1)
Quarter: 2013Q4

REPORT INFORMATION
  Report Type: Spontaneous
  Country: GB (occurrence: GB)
  Receive Date: 20131018
  Receipt Date: 20131018
  Transmission Date: 20140711
  Serious: Yes (Life-Threatening, Hospitalization, Disabling)
  Sender: FDA-Public Use
  Company Number: PHHY2013GB113650

PATIENT
  Sex: Female

DRUGS (2)
  1. NORETHISTERONE [Suspect]
     Indication: MENSTRUAL DISORDER
  2. LAMOTRIGINE [Interacting]
     Indication: EPILEPSY

REACTIONS (9)
  - Liver disorder [Recovered/Resolved]
  - Malaise [Unknown]
  - Pruritus [Unknown]
  - Jaundice [Unknown]
  - Blood bilirubin increased [Unknown]
  - Nasopharyngitis [Recovered/Resolved]
  - Influenza like illness [Recovered/Resolved]
  - Cholelithiasis [Unknown]
  - Drug interaction [Unknown]
